FAERS Safety Report 12555023 (Version 5)
Quarter: 2016Q3

REPORT INFORMATION
  Report Type: Spontaneous
  Country: PH (occurrence: PH)
  Receive Date: 20160714
  Receipt Date: 20160927
  Transmission Date: 20161109
  Serious: Yes (Life-Threatening, Hospitalization)
  Sender: FDA-Public Use
  Company Number: PH-ROCHE-1792246

PATIENT
  Age: 25 Year
  Sex: Female
  Weight: 52 kg

DRUGS (2)
  1. XOLAIR [Suspect]
     Active Substance: OMALIZUMAB
     Dosage: 300 MG, UNK
     Route: 058
     Dates: start: 20160705, end: 20160705
  2. XOLAIR [Suspect]
     Active Substance: OMALIZUMAB
     Indication: CHRONIC SPONTANEOUS URTICARIA
     Dosage: 300 MG, UNK
     Route: 058
     Dates: start: 201606

REACTIONS (14)
  - Anaphylactic reaction [Recovered/Resolved with Sequelae]
  - Tachycardia [Unknown]
  - Influenza like illness [Unknown]
  - Electrocardiogram T wave abnormal [Unknown]
  - Electrocardiogram QT prolonged [Unknown]
  - Gastrooesophageal reflux disease [Unknown]
  - Pyrexia [Recovered/Resolved]
  - Headache [Recovered/Resolved]
  - Pyrexia [Unknown]
  - Lymphocyte count decreased [Unknown]
  - Malaise [Recovered/Resolved]
  - Nasal congestion [Unknown]
  - Headache [Unknown]
  - Blood sodium decreased [Unknown]

NARRATIVE: CASE EVENT DATE: 201606
